FAERS Safety Report 5260672-9 (Version None)
Quarter: 2007Q1

REPORT INFORMATION
  Report Type: 
  Country: None (occurrence: None)
  Receive Date: 20070309
  Receipt Date: 20061219
  Transmission Date: 20070707
  Serious: No
  Sender: FDA-Public Use
  Company Number: US-GLAXOSMITHKLINE-A0631906A

PATIENT
  Age: 40 Year
  Sex: Female

DRUGS (1)
  1. NICORETTE FRUIT CHILL OTC 2MG [Suspect]
     Dates: start: 20061218, end: 20061218

REACTIONS (2)
  - MALAISE [None]
  - NAUSEA [None]
